FAERS Safety Report 6470465-2 (Version None)
Quarter: 2009Q4

REPORT INFORMATION
  Report Type: 
  Country: None (occurrence: None)
  Receive Date: 20091202
  Receipt Date: 20091202
  Transmission Date: 20100525
  Serious: Yes (Other)
  Sender: FDA-Public Use
  Company Number: None

PATIENT
  Sex: Female
  Weight: 78.6 kg

DRUGS (3)
  1. VIVITROL [Suspect]
     Indication: ALCOHOLISM
     Dosage: 380MG MONTHLY INTRAMUSCULAR INJECTION (030)
     Route: 030
     Dates: start: 20091026
  2. VIVITROL [Suspect]
     Indication: DRUG DEPENDENCE
     Dosage: 380MG MONTHLY INTRAMUSCULAR INJECTION (030)
     Route: 030
     Dates: start: 20091026
  3. PLACEBO [Suspect]
     Dosage: PLACEBO MONTHLY INTRAMUSCULAR INJECTION (030)
     Route: 030

REACTIONS (1)
  - INJECTION SITE NODULE [None]
